FAERS Safety Report 11417096 (Version 2)
Quarter: 2015Q4

REPORT INFORMATION
  Report Type: Report from Study
  Country: US (occurrence: US)
  Receive Date: 20150825
  Receipt Date: 20151207
  Transmission Date: 20160304
  Serious: No
  Sender: FDA-Public Use
  Company Number: US-AMGEN-USASL2015084540

PATIENT
  Age: 63 Year
  Sex: Female

DRUGS (1)
  1. ENBREL [Suspect]
     Active Substance: ETANERCEPT
     Indication: ANKYLOSING SPONDYLITIS
     Dosage: 50 MG, ONCE WEEKLY
     Route: 065
     Dates: end: 2015

REACTIONS (7)
  - Drug effect decreased [Unknown]
  - Arthralgia [Unknown]
  - Fatigue [Unknown]
  - HLA marker study positive [Unknown]
  - Myalgia [Unknown]
  - Condition aggravated [Unknown]
  - Muscle spasms [Unknown]
